FAERS Safety Report 14838493 (Version 5)
Quarter: 2020Q3

REPORT INFORMATION
  Report Type: Spontaneous
  Country: US (occurrence: US)
  Receive Date: 20180502
  Receipt Date: 20200731
  Transmission Date: 20201102
  Serious: Yes (Other)
  Sender: FDA-Public Use
  Company Number: US-BAUSCH-BL-2018-012262

PATIENT
  Age: 79 Year
  Sex: Female

DRUGS (4)
  1. LATANOPROST OPHTHALMIC SOLUTION 0.005% [Suspect]
     Active Substance: LATANOPROST
     Dosage: NEW BOTTLE
     Route: 047
     Dates: start: 2018
  2. REFRESH [Suspect]
     Active Substance: UNSPECIFIED INGREDIENT
     Indication: OCULAR DISCOMFORT
     Route: 047
  3. LATANOPROST OPHTHALMIC SOLUTION 0.005% [Suspect]
     Active Substance: LATANOPROST
     Indication: PRODUCT USED FOR UNKNOWN INDICATION
     Dosage: DROPS IN BOTH OF HER EYES, DOSE 1
     Route: 047
     Dates: start: 20161230, end: 20180202
  4. ATENOLOL. [Concomitant]
     Active Substance: ATENOLOL
     Indication: PRODUCT USED FOR UNKNOWN INDICATION
     Dates: start: 2017

REACTIONS (2)
  - Product quality issue [Unknown]
  - Chemical burns of eye [Recovered/Resolved]

NARRATIVE: CASE EVENT DATE: 2018
